FAERS Safety Report 9530719 (Version 1)
Quarter: 2013Q3

REPORT INFORMATION
  Report Type: Spontaneous
  Country: US (occurrence: None)
  Receive Date: 20130916
  Receipt Date: 20130916
  Transmission Date: 20140515
  Serious: Yes (Other)
  Sender: FDA-Public Use
  Company Number: None

PATIENT
  Age: 39 Year
  Sex: Male
  Weight: 83.92 kg

DRUGS (2)
  1. PAROXETINE [Suspect]
     Indication: ANXIETY
     Route: 048
     Dates: start: 20130903, end: 20130912
  2. PAROXETINE [Suspect]
     Indication: DEPRESSION
     Route: 048
     Dates: start: 20130903, end: 20130912

REACTIONS (4)
  - Overdose [None]
  - Hypersomnia [None]
  - Somnolence [None]
  - Hangover [None]
